FAERS Safety Report 20755664 (Version 6)
Quarter: 2022Q3

REPORT INFORMATION
  Report Type: Report from Study
  Country: US (occurrence: US)
  Receive Date: 20220427
  Receipt Date: 20220721
  Transmission Date: 20221027
  Serious: Yes (Hospitalization, Other)
  Sender: FDA-Public Use
  Company Number: NVSC2022US096402

PATIENT
  Sex: Male

DRUGS (2)
  1. ENTRESTO [Suspect]
     Active Substance: SACUBITRIL\VALSARTAN
     Indication: Product used for unknown indication
     Dosage: 1 DOSAGE FORM, BID (49/51 MG)
     Route: 048
     Dates: start: 202202
  2. ENTRESTO [Suspect]
     Active Substance: SACUBITRIL\VALSARTAN
     Dosage: 1 DOSAGE FORM, BID (97/103)
     Route: 048

REACTIONS (9)
  - Fluid retention [Recovering/Resolving]
  - Weight increased [Recovering/Resolving]
  - Poor quality sleep [Recovering/Resolving]
  - Heart rate decreased [Recovering/Resolving]
  - Coronary artery occlusion [Unknown]
  - Hypophagia [Recovering/Resolving]
  - Weight decreased [Recovering/Resolving]
  - Blood cholesterol abnormal [Unknown]
  - Hypertension [Recovering/Resolving]
